FAERS Safety Report 17387401 (Version 1)
Quarter: 2020Q1

REPORT INFORMATION
  Report Type: Spontaneous
  Country: JP (occurrence: JP)
  Receive Date: 20200206
  Receipt Date: 20200206
  Transmission Date: 20200409
  Serious: Yes (Death, Other)
  Sender: FDA-Public Use
  Company Number: JP-009507513-1909JPN001805J

PATIENT
  Age: 62 Year
  Sex: Male
  Weight: 58 kg

DRUGS (16)
  1. LYRICA [Concomitant]
     Active Substance: PREGABALIN
     Indication: SPINAL STENOSIS
     Dosage: 2 DOSAGE FORM, BID
     Route: 048
  2. OXYCONTIN [Concomitant]
     Active Substance: OXYCODONE HYDROCHLORIDE
     Indication: CANCER PAIN
     Dosage: 2 DOSAGE FORM, BID
     Route: 048
  3. SYMPROIC [Concomitant]
     Active Substance: NALDEMEDINE
     Indication: CONSTIPATION
     Dosage: 1 DOSAGE FORM, QD
     Route: 048
  4. KEYTRUDA [Suspect]
     Active Substance: PEMBROLIZUMAB
     Indication: NON-SMALL CELL LUNG CANCER
     Dosage: 200 MILLIGRAM, Q3W
     Route: 041
     Dates: start: 20190820
  5. OXYCONTIN [Concomitant]
     Active Substance: OXYCODONE HYDROCHLORIDE
     Dosage: 4 DOSAGE FORM, BID
     Route: 048
     Dates: start: 20190725
  6. OXINORM (OXYCODONE HYDROCHLORIDE) [Concomitant]
     Active Substance: OXYCODONE HYDROCHLORIDE
     Indication: CANCER PAIN
     Dosage: UNK, PRN
     Route: 048
     Dates: start: 20190725
  7. PARIET [Concomitant]
     Active Substance: RABEPRAZOLE SODIUM
     Indication: GASTRITIS
     Dosage: 1 DOSAGE FORM, QD
     Route: 048
  8. LOXOPROFEN [Concomitant]
     Active Substance: LOXOPROFEN
     Indication: CANCER PAIN
     Dosage: 1 DOSAGE FORM, TID
     Route: 048
     Dates: start: 20190718
  9. CYMBALTA [Concomitant]
     Active Substance: DULOXETINE HYDROCHLORIDE
     Indication: DEPRESSION
     Dosage: 1 DOSAGE FORM, QD
     Route: 048
  10. REBAMIPIDE [Concomitant]
     Active Substance: REBAMIPIDE
     Indication: CANCER PAIN
     Dosage: 1 DOSAGE FORM, TID
     Route: 048
     Dates: start: 20190718
  11. MAGNESIUM OXIDE. [Concomitant]
     Active Substance: MAGNESIUM OXIDE
     Indication: CONSTIPATION
     Dosage: 4 DOSAGE FORM,3X
     Route: 048
  12. SENNOSIDES. [Concomitant]
     Active Substance: SENNOSIDES
     Indication: CONSTIPATION
     Dosage: 2 DOSAGE FORM, QD
     Route: 048
  13. TAPENTA [Concomitant]
     Active Substance: TAPENTADOL HYDROCHLORIDE
     Indication: CANCER PAIN
     Dosage: 2 DOSAGE FORM, BID
     Route: 048
  14. METHYCOBAL [Concomitant]
     Active Substance: METHYLCOBALAMIN
     Indication: MENTAL DISORDER
     Dosage: 1 DOSAGE FORM, TID
     Route: 048
  15. MIYA-BM [Concomitant]
     Active Substance: CLOSTRIDIUM BUTYRICUM SPORES STRAIN M-55
     Indication: GASTROINTESTINAL DISORDER
     Dosage: 1 GRAM, TID
     Route: 048
  16. HEPARIN [Concomitant]
     Active Substance: HEPARIN SODIUM
     Indication: THROMBOPHLEBITIS MIGRANS
     Dosage: UNK
     Route: 048
     Dates: start: 201907

REACTIONS (2)
  - Cerebral infarction [Unknown]
  - Interstitial lung disease [Fatal]

NARRATIVE: CASE EVENT DATE: 20190903
